FAERS Safety Report 16534983 (Version 3)
Quarter: 2019Q3

REPORT INFORMATION
  Report Type: Spontaneous
  Country: US (occurrence: US)
  Receive Date: 20190705
  Receipt Date: 20190923
  Transmission Date: 20191004
  Serious: Yes (Other)
  Sender: FDA-Public Use
  Company Number: US-NOVOPROD-670693

PATIENT
  Sex: Female

DRUGS (1)
  1. NOVOLOG MIX 70/30 [Suspect]
     Active Substance: INSULIN ASPART
     Indication: PRODUCT USED FOR UNKNOWN INDICATION
     Dosage: 60 IU, BID (60 UNITS MORNING AND 60 UNITS NIGHT)
     Route: 065
     Dates: start: 2004

REACTIONS (4)
  - Cochlea implant [Unknown]
  - Meniere^s disease [Unknown]
  - Back pain [Unknown]
  - Radial nerve palsy [Unknown]

NARRATIVE: CASE EVENT DATE: 2014
